FAERS Safety Report 6431494-8 (Version None)
Quarter: 2009Q4

REPORT INFORMATION
  Report Type: 
  Country: None (occurrence: None)
  Receive Date: 20091106
  Receipt Date: 20091029
  Transmission Date: 20100525
  Serious: Yes (Hospitalization)
  Sender: FDA-Public Use
  Company Number: US-ABBOTT-09P-163-0605787-00

PATIENT
  Sex: Female

DRUGS (2)
  1. HUMIRA [Suspect]
     Indication: CROHN'S DISEASE
     Route: 058
     Dates: start: 20090201
  2. PENTASA [Concomitant]
     Indication: CROHN'S DISEASE
     Dates: start: 20090301

REACTIONS (3)
  - CROHN'S DISEASE [None]
  - HERPES ZOSTER [None]
  - INTESTINAL OBSTRUCTION [None]
